FAERS Safety Report 6715791-4 (Version None)
Quarter: 2010Q2

REPORT INFORMATION
  Report Type: 
  Country: None (occurrence: None)
  Receive Date: 20100507
  Receipt Date: 20100503
  Transmission Date: 20101027
  Serious: Yes (Other)
  Sender: FDA-Public Use
  Company Number: US-ELI_LILLY_AND_COMPANY-US201005000307

PATIENT
  Age: 92 Year
  Sex: Male

DRUGS (2)
  1. HUMALOG [Suspect]
  2. LANTUS [Concomitant]
     Indication: DIABETES MELLITUS

REACTIONS (2)
  - BLINDNESS UNILATERAL [None]
  - VISUAL ACUITY REDUCED [None]
